FAERS Safety Report 13894197 (Version 1)
Quarter: 2017Q3

REPORT INFORMATION
  Report Type: Spontaneous
  Country: DE (occurrence: DE)
  Receive Date: 20170822
  Receipt Date: 20170822
  Transmission Date: 20171127
  Serious: Yes (Life-Threatening, Hospitalization, Disabling, Other)
  Sender: FDA-Public Use
  Company Number: DE-MYLANLABS-2017M1050565

PATIENT

DRUGS (7)
  1. LORAZEPAM DURA 1 MG TABLETTEN [Suspect]
     Active Substance: LORAZEPAM
     Indication: DISSOCIATIVE DISORDER
     Dosage: 1 MG, PRN
     Route: 048
     Dates: start: 2011
  2. CETIRIZIN [Concomitant]
     Active Substance: CETIRIZINE HYDROCHLORIDE
     Indication: PRODUCT USED FOR UNKNOWN INDICATION
     Dosage: UNK, QD (1-0-0)
     Route: 065
  3. MOMETASONFUROAT ABZ [Concomitant]
     Indication: PRODUCT USED FOR UNKNOWN INDICATION
     Dosage: UNK
     Route: 065
  4. CARBAMAZEPIN [Suspect]
     Active Substance: CARBAMAZEPINE
     Indication: DISSOCIATIVE DISORDER
     Dosage: 200 MG, BID
     Route: 048
     Dates: start: 20160503, end: 201605
  5. CARBAMAZEPIN [Suspect]
     Active Substance: CARBAMAZEPINE
     Indication: SEIZURE
     Dosage: 400 MG, UNK
     Route: 048
     Dates: start: 201605, end: 20160914
  6. METFORMIN [Concomitant]
     Active Substance: METFORMIN HYDROCHLORIDE
     Indication: PRODUCT USED FOR UNKNOWN INDICATION
     Dosage: UNK, BID (1-0-1)
     Route: 065
  7. ASPIRIN. [Concomitant]
     Active Substance: ASPIRIN
     Indication: PRODUCT USED FOR UNKNOWN INDICATION
     Dosage: UNK, BID (1-0-1)
     Route: 065

REACTIONS (14)
  - Skull fractured base [Unknown]
  - Depressed level of consciousness [Unknown]
  - Amnesia [Unknown]
  - Folate deficiency [Unknown]
  - Dizziness [Unknown]
  - Hand fracture [Unknown]
  - Headache [Unknown]
  - Fall [Unknown]
  - Toxicity to various agents [Unknown]
  - Cystitis bacterial [Unknown]
  - Avulsion fracture [Unknown]
  - Loss of consciousness [Unknown]
  - Disturbance in attention [Unknown]
  - Drug dependence [Unknown]

NARRATIVE: CASE EVENT DATE: 201605
